FAERS Safety Report 6239815-6 (Version None)
Quarter: 2009Q2

REPORT INFORMATION
  Report Type: 
  Country: None (occurrence: None)
  Receive Date: 20090618
  Receipt Date: 20090618
  Transmission Date: 20091009
  Serious: Yes (Hospitalization)
  Sender: FDA-Public Use
  Company Number: None

PATIENT
  Age: 59 Year
  Sex: Male
  Weight: 96.1626 kg

DRUGS (1)
  1. LEVETIRACETAM 750MG TEVA PHARMACEUTICAL USA [Suspect]
     Dosage: TAKE 1 TABLET TWICE A DAY
     Dates: start: 20090415, end: 20090430

REACTIONS (4)
  - FALL [None]
  - GRAND MAL CONVULSION [None]
  - LOSS OF CONSCIOUSNESS [None]
  - UPPER LIMB FRACTURE [None]
